FAERS Safety Report 7776294-1 (Version None)
Quarter: 2011Q3

REPORT INFORMATION
  Report Type: 
  Country: None (occurrence: None)
  Receive Date: 20110926
  Receipt Date: 20110913
  Transmission Date: 20111222
  Serious: Yes (Life-Threatening, Hospitalization, Disabling)
  Sender: FDA-Public Use
  Company Number: CA-JNJFOC-20110902089

PATIENT
  Sex: Male
  Weight: 68.5 kg

DRUGS (5)
  1. HYDROMORPHONE HCL [Concomitant]
     Indication: PAIN
     Route: 065
     Dates: start: 20110829, end: 20110831
  2. PREDNISONE [Suspect]
     Indication: PROSTATE CANCER METASTATIC
     Route: 065
     Dates: start: 20110816
  3. ABIRATERONE ACETATE [Suspect]
     Route: 048
  4. ABIRATERONE ACETATE [Suspect]
     Indication: PROSTATE CANCER METASTATIC
     Route: 048
     Dates: start: 20110816
  5. GABAPENTIN [Concomitant]
     Indication: PAIN
     Route: 065
     Dates: start: 20110829, end: 20110831

REACTIONS (2)
  - PAIN [None]
  - SEPSIS [None]
